FAERS Safety Report 6272375-2 (Version None)
Quarter: 2009Q3

REPORT INFORMATION
  Report Type: 
  Country: None (occurrence: None)
  Receive Date: 20090717
  Receipt Date: 20090713
  Transmission Date: 20100115
  Serious: Yes (Other)
  Sender: FDA-Public Use
  Company Number: AU-ASTRAZENECA-2009AP02763

PATIENT
  Age: 12979 Day
  Sex: Female
  Weight: 53 kg

DRUGS (7)
  1. SEROQUEL [Suspect]
     Indication: PSYCHOTIC DISORDER
     Dosage: 100 MG MORNING, 300 MG AT NIGHT
     Route: 048
  2. MOTILIUM [Interacting]
     Indication: IMPAIRED GASTRIC EMPTYING
     Route: 048
     Dates: start: 20090406
  3. PREDNISONE [Concomitant]
     Indication: AUTOIMMUNE DISORDER
     Route: 048
     Dates: start: 20090410, end: 20090424
  4. CLOPIDOGREL [Concomitant]
     Indication: THROMBOSIS
     Route: 048
     Dates: start: 20080101
  5. OLSALAZINE [Concomitant]
     Indication: COLITIS ULCERATIVE
     Route: 048
     Dates: start: 20040101
  6. SOMAC [Concomitant]
     Indication: PEPTIC ULCER
     Route: 048
     Dates: start: 20020101
  7. NIZATADINE [Concomitant]
     Indication: PEPTIC ULCER
     Route: 048
     Dates: start: 20070101

REACTIONS (3)
  - DRUG INTERACTION [None]
  - PARKINSONISM [None]
  - TACHYCARDIA [None]
